FAERS Safety Report 5034776-X (Version None)
Quarter: 2006Q2

REPORT INFORMATION
  Report Type: 
  Country: None (occurrence: None)
  Receive Date: 20060627
  Receipt Date: 20060616
  Transmission Date: 20061013
  Serious: Yes (Other)
  Sender: FDA-Public Use
  Company Number: PHBS2006BR09179

PATIENT
  Sex: Female
  Weight: 64 kg

DRUGS (1)
  1. TEGRETOL [Suspect]
     Dosage: 200 MG, QHS
     Route: 048
     Dates: start: 20060605, end: 20060613

REACTIONS (6)
  - EYE SWELLING [None]
  - JOINT SWELLING [None]
  - PRURITUS [None]
  - RASH ERYTHEMATOUS [None]
  - RASH MACULAR [None]
  - SWELLING FACE [None]
